FAERS Safety Report 4597735-7 (Version None)
Quarter: 2005Q1

REPORT INFORMATION
  Report Type: 
  Country: None (occurrence: None)
  Receive Date: 20050125
  Receipt Date: 20040924
  Transmission Date: 20050727
  Serious: No
  Sender: FDA-Public Use
  Company Number: USA040876093

PATIENT
  Age: 67 Year
  Sex: Female
  Weight: 73 kg

DRUGS (5)
  1. FORTEO [Suspect]
     Indication: OSTEOPOROSIS
     Dosage: 20 UG/1 DAY
     Dates: start: 20040814, end: 20040901
  2. PRAVACHOL [Concomitant]
  3. PROTONIX [Concomitant]
  4. CALCIUM GLUCONATE [Concomitant]
  5. VITAMIN D [Concomitant]

REACTIONS (10)
  - ARTHRALGIA [None]
  - BACK PAIN [None]
  - BONE PAIN [None]
  - CHEST WALL PAIN [None]
  - CONSTIPATION [None]
  - DIFFICULTY IN WALKING [None]
  - FATIGUE [None]
  - INJECTION SITE DISCOMFORT [None]
  - INSOMNIA [None]
  - JOINT SWELLING [None]
